FAERS Safety Report 6760136-7 (Version None)
Quarter: 2010Q2

REPORT INFORMATION
  Report Type: 
  Country: None (occurrence: None)
  Receive Date: 20100524
  Receipt Date: 20100129
  Transmission Date: 20101027
  Serious: No
  Sender: FDA-Public Use
  Company Number: 006029

PATIENT
  Sex: Male

DRUGS (1)
  1. CIMZIA [Suspect]
     Indication: CROHN'S DISEASE
     Dosage: 400 MG SUBCUTANEOUS
     Route: 058
     Dates: start: 20090123

REACTIONS (2)
  - INJECTION SITE DISCOMFORT [None]
  - WEIGHT DECREASED [None]
